FAERS Safety Report 20636908 (Version 1)
Quarter: 2022Q1

REPORT INFORMATION
  Report Type: Spontaneous
  Country: GB (occurrence: GB)
  Receive Date: 20220325
  Receipt Date: 20220325
  Transmission Date: 20220424
  Serious: Yes (Other)
  Sender: FDA-Public Use
  Company Number: None

PATIENT
  Age: 72 Year
  Sex: Female
  Weight: 58 kg

DRUGS (15)
  1. NITROFURANTOIN [Suspect]
     Active Substance: NITROFURANTOIN
     Indication: Product used for unknown indication
     Dosage: 100 MILLIGRAM, BID(TAKE ONE TWICE DAILY - 100MG MODIFIED-RELEASE CAPSULES)
     Dates: start: 20220309, end: 20220316
  2. ALENDRONIC ACID [Concomitant]
     Active Substance: ALENDRONIC ACID
     Dosage: 1 DOSAGE FORM, QW(TAKE ONE WEEKLY)
     Dates: start: 20210414
  3. ATORVASTATIN [Concomitant]
     Active Substance: ATORVASTATIN
     Dosage: 1 DOSAGE FORM, QD(TAKE ONE DAILY)
     Dates: start: 20210414, end: 20220202
  4. CETIRIZINE [Concomitant]
     Active Substance: CETIRIZINE HYDROCHLORIDE
     Dosage: UNK, QD (TAKE ONE OR TWO DAILY)
     Dates: start: 20220103, end: 20220118
  5. CLARITHROMYCIN [Concomitant]
     Active Substance: CLARITHROMYCIN
     Dosage: 1 DOSAGE FORM, BID(TAKE ONE EVERY 12 HRS)
     Dates: start: 20220104, end: 20220111
  6. CLOBETASOL PROPIONATE [Concomitant]
     Active Substance: CLOBETASOL PROPIONATE
     Dosage: UNK, AM(APPLY IN THE MORNING TO THE AFFECTED AREA PRN)
     Dates: start: 20220215, end: 20220315
  7. CLOPIDOGREL [Concomitant]
     Active Substance: CLOPIDOGREL BISULFATE
     Dosage: 1 DOSAGE FORM, QD(TAKE ONE ONCE DAILY)
     Dates: start: 20210414
  8. DERMOL [Concomitant]
     Active Substance: BENZALKONIUM CHLORIDE\CHLORHEXIDINE HYDROCHLORIDE\ISOPROPYL MYRISTATE\PARAFFIN
     Dosage: UNK, TID(APPLY THREE TIMES A DAY)
     Dates: start: 20220104, end: 20220203
  9. DOXYCYCLINE [Concomitant]
     Active Substance: DOXYCYCLINE
     Dosage: 2 DOSAGE FORM, QD(TWO NOW THEN ONE DAILY)
     Dates: start: 20220207, end: 20220214
  10. FLUCONAZOLE [Concomitant]
     Active Substance: FLUCONAZOLE
     Dosage: 1 DOSAGE FORM(TAKE ONE IMMEDIATELY)
     Dates: start: 20220202, end: 20220203
  11. HYPROMELLOSES [Concomitant]
     Active Substance: HYPROMELLOSES
     Dosage: 1 DOSAGE FORM, QID(1 DROP FOUR TIMES DAILY WHEN REQUIRED)
     Dates: start: 20220202
  12. LANSOPRAZOLE [Concomitant]
     Active Substance: LANSOPRAZOLE
     Dosage: 1 DOSAGE FORM, QD(TAKE ONE ONCE DAILY)
     Dates: start: 20210414, end: 20220202
  13. NYSTATIN [Concomitant]
     Active Substance: NYSTATIN
     Dosage: 1 MILLILITER, QID(1 ML QDS)
     Dates: start: 20220117, end: 20220124
  14. PREDNISOLONE [Concomitant]
     Active Substance: PREDNISOLONE
     Dosage: 6 DOSAGE FORM, QD(TAKE SIX DAILY)
     Dates: start: 20220104, end: 20220109
  15. ZOLMITRIPTAN [Concomitant]
     Active Substance: ZOLMITRIPTAN
     Dosage: 2 DOSAGE FORM(TAKE TWO AS DIRECTED)
     Dates: start: 20211224, end: 20220121

REACTIONS (3)
  - Hyperhidrosis [Recovered/Resolved]
  - Feeling hot [Recovered/Resolved]
  - Tremor [Recovered/Resolved]

NARRATIVE: CASE EVENT DATE: 20220311
